FAERS Safety Report 10709868 (Version 2)
Quarter: 2015Q1

REPORT INFORMATION
  Report Type: Spontaneous
  Country: US (occurrence: US)
  Receive Date: 20150114
  Receipt Date: 20150218
  Transmission Date: 20150721
  Serious: Yes (Hospitalization, Other)
  Sender: FDA-Public Use
  Company Number: US-BAYER-2015-004418

PATIENT
  Age: 43 Year
  Sex: Female

DRUGS (8)
  1. DILAUDID [Concomitant]
     Active Substance: HYDROMORPHONE HYDROCHLORIDE
  2. PHENERGAN [PROMETHAZINE] [Concomitant]
  3. AMOXIL [Concomitant]
     Active Substance: AMOXICILLIN
     Dosage: 500 MG, TID FOR 10 DAYS
     Route: 048
     Dates: start: 20071217
  4. CYMBALTA [Concomitant]
     Active Substance: DULOXETINE HYDROCHLORIDE
     Route: 048
  5. TYSABRI [Concomitant]
     Active Substance: NATALIZUMAB
     Dosage: EVERY MONTH
     Route: 042
  6. TRAMADOL [Concomitant]
     Active Substance: TRAMADOL
  7. YAZ [Suspect]
     Active Substance: DROSPIRENONE\ETHINYL ESTRADIOL
  8. AMBIEN [Concomitant]
     Active Substance: ZOLPIDEM TARTRATE

REACTIONS (8)
  - Vena cava thrombosis [None]
  - Pain [None]
  - Deep vein thrombosis [None]
  - Injury [None]
  - General physical health deterioration [None]
  - Emotional distress [None]
  - Subclavian vein thrombosis [None]
  - Anxiety [None]

NARRATIVE: CASE EVENT DATE: 20080206
